FAERS Safety Report 18551483 (Version 1)
Quarter: 2020Q4

REPORT INFORMATION
  Report Type: Report from Study
  Country: BR (occurrence: BR)
  Receive Date: 20201126
  Receipt Date: 20201126
  Transmission Date: 20210114
  Serious: Yes (Life-Threatening, Hospitalization, Other)
  Sender: FDA-Public Use
  Company Number: PHHY2018BR027862

PATIENT
  Age: 38 Year
  Sex: Male
  Weight: 102 kg

DRUGS (7)
  1. COSENTYX [Suspect]
     Active Substance: SECUKINUMAB
     Dosage: UNK
     Route: 065
     Dates: start: 202011
  2. COSENTYX [Suspect]
     Active Substance: SECUKINUMAB
     Dosage: UNK
     Route: 065
     Dates: start: 20181128
  3. COSENTYX [Suspect]
     Active Substance: SECUKINUMAB
     Dosage: UNK
     Route: 065
     Dates: start: 20181027
  4. CLOMIPRAMINE [Concomitant]
     Active Substance: CLOMIPRAMINE
     Indication: DRUG DEPENDENCE
     Dosage: 6 DF, QD
     Route: 065
     Dates: start: 2015
  5. CLONAZEPAM. [Concomitant]
     Active Substance: CLONAZEPAM
     Indication: INSOMNIA
     Dosage: 6 DF, QD
     Route: 065
     Dates: start: 2015
  6. DEPAKENE [Concomitant]
     Active Substance: VALPROIC ACID
     Indication: DRUG DEPENDENCE
     Dosage: 8 DF, UNK
     Route: 065
     Dates: start: 2010
  7. COSENTYX [Suspect]
     Active Substance: SECUKINUMAB
     Indication: ANKYLOSING SPONDYLITIS
     Dosage: 150 MG, QMO
     Route: 058
     Dates: start: 20180227

REACTIONS (15)
  - Uveitis [Unknown]
  - Cartilage injury [Unknown]
  - Ankylosing spondylitis [Not Recovered/Not Resolved]
  - Gait inability [Not Recovered/Not Resolved]
  - Mobility decreased [Not Recovered/Not Resolved]
  - Mental disorder [Not Recovered/Not Resolved]
  - Drug ineffective [Unknown]
  - Concomitant disease aggravated [Recovered/Resolved]
  - Suicide attempt [Unknown]
  - Spinal pain [Not Recovered/Not Resolved]
  - Calcification of muscle [Not Recovered/Not Resolved]
  - Pain [Not Recovered/Not Resolved]
  - Alcohol problem [Recovered/Resolved]
  - Inappropriate schedule of product administration [Unknown]
  - General physical health deterioration [Not Recovered/Not Resolved]

NARRATIVE: CASE EVENT DATE: 20180227
